FAERS Safety Report 24147506 (Version 5)
Quarter: 2024Q3

REPORT INFORMATION
  Report Type: Spontaneous
  Country: US (occurrence: US)
  Receive Date: 20240729
  Receipt Date: 20240917
  Transmission Date: 20241016
  Serious: Yes (Other)
  Sender: ORGANON
  Company Number: US-Organon-US20240700866

PATIENT
  Age: 30 Year
  Sex: Male

DRUGS (4)
  1. PREGNYL [Suspect]
     Active Substance: CHORIOGONADOTROPIN ALFA
     Indication: Ejaculation disorder
     Dosage: INJECTION FLUID, 1000 UNITS/ML
     Route: 030
     Dates: start: 20240524, end: 20240529
  2. PREGNYL [Suspect]
     Active Substance: CHORIOGONADOTROPIN ALFA
     Dosage: ONE INJECTION DAILY
     Dates: start: 20240701
  3. STERILE WATER [Suspect]
     Active Substance: WATER
     Dosage: UNK
  4. EFFEXOR [Concomitant]
     Active Substance: VENLAFAXINE HYDROCHLORIDE
     Dosage: 150 MILLIGRAM, QD

REACTIONS (9)
  - Mental impairment [Recovered/Resolved]
  - Fatigue [Recovered/Resolved]
  - Somnolence [Recovered/Resolved]
  - Abnormal dreams [Recovered/Resolved]
  - Adverse event [Recovered/Resolved]
  - Cognitive disorder [Recovered/Resolved]
  - Fatigue [Recovered/Resolved]
  - Nightmare [Unknown]
  - Fatigue [Unknown]

NARRATIVE: CASE EVENT DATE: 20240524
